FAERS Safety Report 7367448-7 (Version None)
Quarter: 2011Q1

REPORT INFORMATION
  Report Type: 
  Country: None (occurrence: None)
  Receive Date: 20110309
  Receipt Date: 20110301
  Transmission Date: 20110831
  Serious: Yes (Hospitalization)
  Sender: FDA-Public Use
  Company Number: 2010SP066395

PATIENT
  Sex: Male

DRUGS (8)
  1. PAROXETINE HCL [Concomitant]
  2. REFLEX (MIRTAZAPINE /01293201/) [Suspect]
     Indication: DEPRESSION
     Dosage: 45,30,15,7.5 MG QD, PO
     Route: 048
     Dates: start: 20101013, end: 20101013
  3. REFLEX (MIRTAZAPINE /01293201/) [Suspect]
     Indication: DEPRESSION
     Dosage: 45,30,15,7.5 MG QD, PO
     Route: 048
     Dates: start: 20100618, end: 20100808
  4. REFLEX (MIRTAZAPINE /01293201/) [Suspect]
     Indication: DEPRESSION
     Dosage: 45,30,15,7.5 MG QD, PO
     Route: 048
     Dates: start: 20100709, end: 20100928
  5. REFLEX (MIRTAZAPINE /01293201/) [Suspect]
     Indication: DEPRESSION
     Dosage: 45,30,15,7.5 MG QD, PO
     Route: 048
     Dates: start: 20100929, end: 20101012
  6. VALPROATE SODIUM [Concomitant]
  7. ETHYL LOFLAZEPATE [Concomitant]
  8. SULPRIDE [Concomitant]

REACTIONS (5)
  - INCREASED APPETITE [None]
  - HYPOGLYCAEMIA [None]
  - WEIGHT DECREASED [None]
  - WEIGHT INCREASED [None]
  - DIABETIC KETOACIDOSIS [None]
